FAERS Safety Report 19646911 (Version 1)
Quarter: 2021Q3

REPORT INFORMATION
  Report Type: Spontaneous
  Country: IN (occurrence: IN)
  Receive Date: 20210802
  Receipt Date: 20210802
  Transmission Date: 20211014
  Serious: Yes (Hospitalization)
  Sender: FDA-Public Use
  Company Number: IN-PFIZER INC-202100930588

PATIENT
  Age: 59 Year
  Sex: Female

DRUGS (6)
  1. FEBUGET [Concomitant]
     Active Substance: FEBUXOSTAT
     Dosage: 40 MG
  2. PALBACE [Suspect]
     Active Substance: PALBOCICLIB
     Indication: BREAST CANCER METASTATIC
     Dosage: 125 MG, CYCLIC: ONCE DAILY (OD) FOR 21 DAYS
     Route: 048
     Dates: start: 20210617
  3. CALCITONIN [Concomitant]
     Active Substance: CALCITONIN
  4. HYDROCORTISONE. [Concomitant]
     Active Substance: HYDROCORTISONE
  5. ZOLEDRONATE [Concomitant]
     Active Substance: ZOLEDRONIC ACID
  6. FULVESTRANT. [Concomitant]
     Active Substance: FULVESTRANT
     Dosage: 250 MG (500 MG) ONCE
     Route: 030
     Dates: start: 20210715

REACTIONS (9)
  - Hypercalcaemia of malignancy [Recovered/Resolved]
  - Constipation [Unknown]
  - Hypercalcaemia [Recovered/Resolved]
  - Abdominal pain [Unknown]
  - Somnolence [Unknown]
  - Decreased appetite [Unknown]
  - Hepatic encephalopathy [Unknown]
  - Hyperammonaemia [Unknown]
  - Fatigue [Unknown]

NARRATIVE: CASE EVENT DATE: 2021
